FAERS Safety Report 23060179 (Version 1)
Quarter: 2023Q4

REPORT INFORMATION
  Report Type: Spontaneous
  Country: UM (occurrence: UM)
  Receive Date: 20231012
  Receipt Date: 20231012
  Transmission Date: 20240110
  Serious: Yes (Death)
  Sender: FDA-Public Use
  Company Number: UM-JNJFOC-20231017970

PATIENT

DRUGS (1)
  1. CARVYKTI [Suspect]
     Active Substance: CILTACABTAGENE AUTOLEUCEL
     Indication: Product used for unknown indication
     Route: 042

REACTIONS (2)
  - Death [Fatal]
  - Parkinsonism [Unknown]
